FAERS Safety Report 6164787-2 (Version None)
Quarter: 2009Q2

REPORT INFORMATION
  Report Type: 
  Country: None (occurrence: None)
  Receive Date: 20090423
  Receipt Date: 20090422
  Transmission Date: 20091009
  Serious: Yes (Hospitalization)
  Sender: FDA-Public Use
  Company Number: US-B.I. PHARMACEUTICALS,INC./RIDGEFIELD-2009-BP-03902BP

PATIENT
  Sex: Female

DRUGS (8)
  1. MICARDIS [Suspect]
     Indication: HYPERTENSION
     Dosage: 40MG
     Route: 048
     Dates: start: 20090122, end: 20090212
  2. POTASSIUM CHLORIDE [Concomitant]
     Indication: HYPERTENSION
  3. ASPIRIN [Concomitant]
     Indication: HYPERTENSION
  4. FUROSEMIDE [Concomitant]
     Indication: HYPERTENSION
  5. SULAR [Concomitant]
     Indication: HYPERTENSION
  6. ISOSORBIDE DINITRATE [Concomitant]
     Indication: HYPERTENSION
  7. METOPROLOL SUCCINATE [Concomitant]
     Indication: HYPERTENSION
  8. DOXAZOSIN MESYLATE [Concomitant]
     Indication: HYPERTENSION

REACTIONS (8)
  - BACK PAIN [None]
  - BLOOD POTASSIUM DECREASED [None]
  - DYSPNOEA [None]
  - HYPERHIDROSIS [None]
  - MUSCLE SPASMS [None]
  - NECK PAIN [None]
  - TREMOR [None]
  - URINARY INCONTINENCE [None]
